FAERS Safety Report 6288419-8 (Version None)
Quarter: 2009Q3

REPORT INFORMATION
  Report Type: 
  Country: None (occurrence: None)
  Receive Date: 20090729
  Receipt Date: 20090721
  Transmission Date: 20100115
  Serious: Yes (Other)
  Sender: FDA-Public Use
  Company Number: A0797997A

PATIENT
  Age: 73 Year
  Sex: Female

DRUGS (3)
  1. ADVAIR HFA [Suspect]
     Indication: ASTHMA
     Dosage: 1PUFF TWICE PER DAY
     Route: 055
     Dates: start: 20080101
  2. FORTEO [Concomitant]
  3. LIPITOR [Concomitant]

REACTIONS (4)
  - ASTHMA [None]
  - CHEST DISCOMFORT [None]
  - DYSPNOEA [None]
  - RESPIRATORY TRACT INFECTION [None]
